FAERS Safety Report 6860310-5 (Version None)
Quarter: 2010Q3

REPORT INFORMATION
  Report Type: 
  Country: None (occurrence: None)
  Receive Date: 20100720
  Receipt Date: 20100713
  Transmission Date: 20110219
  Serious: Yes (Other)
  Sender: FDA-Public Use
  Company Number: AU-SANOFI-AVENTIS-2010SA040431

PATIENT
  Age: 65 Year

DRUGS (3)
  1. NATRILIX [Suspect]
     Indication: HYPERTENSION
     Route: 065
     Dates: end: 20100101
  2. IRBESARTAN AND HYDROCHLOROTHIAZIDE [Suspect]
     Indication: PRODUCT USED FOR UNKNOWN INDICATION
     Route: 065
     Dates: end: 20100101
  3. TADALAFIL [Suspect]
     Indication: PRODUCT USED FOR UNKNOWN INDICATION
     Route: 065
     Dates: end: 20100101

REACTIONS (1)
  - ATRIAL FLUTTER [None]
